FAERS Safety Report 8614440-8 (Version None)
Quarter: 2012Q3

REPORT INFORMATION
  Report Type: 
  Country: None (occurrence: None)
  Receive Date: 20120823
  Receipt Date: 20120817
  Transmission Date: 20120928
  Serious: Yes (Hospitalization, Other)
  Sender: FDA-Public Use
  Company Number: PHHY2012CA037155

PATIENT
  Sex: Male

DRUGS (2)
  1. SANDOSTATIN LAR [Suspect]
     Indication: CARCINOID TUMOUR
     Dosage: 30 MG, QMO
     Route: 030
     Dates: start: 20111206
  2. DILTIAZEM [Concomitant]
     Dosage: 120 MG, UNK

REACTIONS (11)
  - CONSTIPATION [None]
  - DIZZINESS [None]
  - PERIORBITAL HAEMATOMA [None]
  - PULMONARY OEDEMA [None]
  - DRY SKIN [None]
  - ABDOMINAL PAIN LOWER [None]
  - FLATULENCE [None]
  - EYE INJURY [None]
  - OXYGEN SATURATION DECREASED [None]
  - DYSPNOEA [None]
  - LOSS OF CONSCIOUSNESS [None]
